FAERS Safety Report 11965354 (Version 1)
Quarter: 2016Q1

REPORT INFORMATION
  Report Type: Spontaneous
  Country: US (occurrence: None)
  Receive Date: 20160122
  Receipt Date: 20160122
  Transmission Date: 20160526
  Serious: Yes (Disabling, Other)
  Sender: FDA-Public Use
  Company Number: None

PATIENT
  Age: 78 Year
  Sex: Male
  Weight: 70.31 kg

DRUGS (15)
  1. AVODART [Concomitant]
     Active Substance: DUTASTERIDE
  2. ZYTIGA [Suspect]
     Active Substance: ABIRATERONE ACETATE
     Indication: PROSTATE CANCER
     Dosage: 250 MG, 4 PILLS, ONCE DAILY, MOUTH
     Route: 048
     Dates: start: 2013
  3. PREDNISONE. [Concomitant]
     Active Substance: PREDNISONE
  4. ZYTIGA [Suspect]
     Active Substance: ABIRATERONE ACETATE
     Indication: METASTASIS
     Dosage: 250 MG, 4 PILLS, ONCE DAILY, MOUTH
     Route: 048
     Dates: start: 2013
  5. LYCOPENE [Concomitant]
     Active Substance: LYCOPENE
  6. ZYTIGA [Suspect]
     Active Substance: ABIRATERONE ACETATE
     Indication: HORMONE LEVEL ABNORMAL
     Dosage: 250 MG, 4 PILLS, ONCE DAILY, MOUTH
     Route: 048
     Dates: start: 2013
  7. CALCIUM [Concomitant]
     Active Substance: CALCIUM
  8. FAMIDOLINE [Concomitant]
  9. LORATIN [Concomitant]
     Active Substance: LORATADINE
  10. METFORMIN [Concomitant]
     Active Substance: METFORMIN HYDROCHLORIDE
  11. OMEGA 3 [Concomitant]
     Active Substance: OMEGA-3 FATTY ACIDS
  12. CELEBREX [Concomitant]
     Active Substance: CELECOXIB
  13. ESTROGEN [Concomitant]
     Active Substance: ESTRONE\SUS SCROFA OVARY
  14. VITAMIN D [Concomitant]
     Active Substance: CHOLECALCIFEROL
  15. MOTOKI [Concomitant]

REACTIONS (5)
  - Vomiting [None]
  - Dizziness [None]
  - Asthenia [None]
  - Malaise [None]
  - Liver injury [None]

NARRATIVE: CASE EVENT DATE: 201512
